FAERS Safety Report 12171845 (Version 1)
Quarter: 2016Q1

REPORT INFORMATION
  Report Type: Spontaneous
  Country: US (occurrence: US)
  Receive Date: 20160311
  Receipt Date: 20160311
  Transmission Date: 20160526
  Serious: No
  Sender: FDA-Public Use
  Company Number: US-GALDERMA-US16000539

PATIENT
  Sex: Female

DRUGS (7)
  1. FLONASE [Concomitant]
     Active Substance: FLUTICASONE PROPIONATE
     Indication: HYPERSENSITIVITY
     Route: 045
     Dates: start: 20151201
  2. CALCIUM [Concomitant]
     Active Substance: CALCIUM
     Dosage: 1000 MG
     Route: 048
  3. MIRVASO [Suspect]
     Active Substance: BRIMONIDINE TARTRATE
     Indication: ROSACEA
     Dosage: 0.33%
     Route: 061
     Dates: start: 20150325
  4. VITAMIN D [Concomitant]
     Active Substance: CHOLECALCIFEROL
     Dosage: 2000 UNITS
     Route: 048
  5. FISH OIL [Concomitant]
     Active Substance: FISH OIL
     Dosage: 2400 UNITS
     Route: 048
  6. COENZYME Q10 [Concomitant]
     Active Substance: UBIDECARENONE
     Dosage: 400 MG
     Route: 048
  7. SYNTHROID [Concomitant]
     Active Substance: LEVOTHYROXINE SODIUM
     Indication: THYROID DISORDER
     Dosage: 75 MCG
     Route: 048

REACTIONS (2)
  - Flushing [Unknown]
  - Erythema [Unknown]
